FAERS Safety Report 8645074 (Version 4)
Quarter: 2014Q1

REPORT INFORMATION
  Report Type: Spontaneous
  Country: JP (occurrence: JP)
  Receive Date: 20120702
  Receipt Date: 20140106
  Transmission Date: 20141002
  Serious: Yes (Death, Other)
  Sender: FDA-Public Use
  Company Number: PHHY2012JP055766

PATIENT
  Age: 47 Year
  Sex: Female
  Weight: 52 kg

DRUGS (3)
  1. ZOMETA [Suspect]
     Indication: METASTASES TO BONE
     Dosage: 4 MG, PER ADMINISTRATION
     Route: 041
     Dates: start: 20060801, end: 200904
  2. AREDIA [Suspect]
     Indication: METASTASES TO BONE
     Dosage: 90 MG, DAILY
     Route: 041
     Dates: start: 200507, end: 20060801
  3. NAVELBINE [Concomitant]
     Dates: start: 20070626

REACTIONS (2)
  - Breast cancer [Fatal]
  - Osteonecrosis of jaw [Recovered/Resolved with Sequelae]
